FAERS Safety Report 5363012-X (Version None)
Quarter: 2007Q2

REPORT INFORMATION
  Report Type: 
  Country: None (occurrence: None)
  Receive Date: 20070615
  Receipt Date: 20070611
  Transmission Date: 20071010
  Serious: Yes (Hospitalization)
  Sender: FDA-Public Use
  Company Number: 2007RL000264

PATIENT
  Age: 44 Year
  Sex: Male

DRUGS (7)
  1. OMACOR [Suspect]
     Indication: MYOCARDIAL INFARCTION
     Dosage: 1000 MG; PO
     Route: 048
     Dates: start: 20070413, end: 20070421
  2. ATORVASTATIN CALCIUM [Suspect]
     Indication: MYOCARDIAL INFARCTION
     Dosage: 80 MG; PO
     Route: 048
     Dates: start: 20070413, end: 20070421
  3. DIAZEPAM [Suspect]
     Indication: MYOCARDIAL INFARCTION
     Dosage: 2 MG; PO
     Route: 048
     Dates: start: 20070413, end: 20070419
  4. PLAVIX [Suspect]
     Indication: CORONARY ARTERY DISEASE
     Dosage: 75 MG; PO
     Route: 048
     Dates: start: 20070413, end: 20070421
  5. ASPIRIN [Concomitant]
  6. LANSOPRAZOLE [Concomitant]
  7. METOPROLOL SUCCINATE [Concomitant]

REACTIONS (2)
  - PRURITUS [None]
  - RASH MACULO-PAPULAR [None]
